FAERS Safety Report 16781038 (Version 1)
Quarter: 2019Q3

REPORT INFORMATION
  Report Type: Spontaneous
  Country: CN (occurrence: CN)
  Receive Date: 20190906
  Receipt Date: 20190906
  Transmission Date: 20191005
  Serious: Yes (Disabling)
  Sender: FDA-Public Use
  Company Number: CN-PFIZER INC-2019380398

PATIENT
  Age: 74 Year
  Sex: Male
  Weight: 45 kg

DRUGS (6)
  1. GLUCOSE INJECTION [Concomitant]
     Active Substance: DEXTROSE
     Indication: VEHICLE SOLUTION USE
     Dosage: 50 ML, 1X/DAY
     Route: 013
     Dates: start: 20190821, end: 20190825
  2. RALTITREXED [Suspect]
     Active Substance: RALTITREXED
     Indication: HEPATIC CANCER
     Dosage: 2 MG, 1X/DAY
     Route: 013
     Dates: start: 20190821, end: 20190825
  3. AI HENG [Suspect]
     Active Substance: OXALIPLATIN
     Indication: HEPATIC CANCER
     Dosage: 50 MG, 1X/DAY
     Route: 013
     Dates: start: 20190821, end: 20190825
  4. IODINATED OIL [Suspect]
     Active Substance: IODINE
     Indication: HEPATIC CANCER
     Dosage: 3 ML, 1X/DAY
     Route: 013
     Dates: start: 20190821, end: 20190825
  5. SODIUM CHLORIDE. [Concomitant]
     Active Substance: SODIUM CHLORIDE
     Indication: VEHICLE SOLUTION USE
     Dosage: 30 ML, 1X/DAY
     Route: 013
     Dates: start: 20190821, end: 20190825
  6. PHARMORUBICIN [Suspect]
     Active Substance: EPIRUBICIN
     Indication: HEPATIC CANCER
     Dosage: 30 MG, 1X/DAY
     Route: 013
     Dates: start: 20190821, end: 20190825

REACTIONS (1)
  - Hepatic function abnormal [Recovering/Resolving]

NARRATIVE: CASE EVENT DATE: 20190825
